FAERS Safety Report 17355213 (Version 1)
Quarter: 2020Q1

REPORT INFORMATION
  Report Type: Spontaneous
  Country: IT (occurrence: IT)
  Receive Date: 20200131
  Receipt Date: 20200131
  Transmission Date: 20200409
  Serious: Yes (Other)
  Sender: FDA-Public Use
  Company Number: IT-ALK-ABELLO A/S-2020AA000258

PATIENT

DRUGS (1)
  1. GRAZAX [Suspect]
     Active Substance: PHLEUM PRATENSE POLLEN
     Indication: FOOD ALLERGY
     Dosage: 75000 SQ-T
     Route: 048
     Dates: start: 20191219, end: 20200115

REACTIONS (6)
  - Oral pain [Recovered/Resolved]
  - Pharyngeal disorder [Recovered/Resolved]
  - Oral discomfort [Recovered/Resolved]
  - Product use in unapproved indication [None]
  - Cough [Recovered/Resolved]
  - Oropharyngeal pain [Recovered/Resolved]

NARRATIVE: CASE EVENT DATE: 20200107
